FAERS Safety Report 13848711 (Version 1)
Quarter: 2017Q3

REPORT INFORMATION
  Report Type: Spontaneous
  Country: US (occurrence: US)
  Receive Date: 20170809
  Receipt Date: 20170809
  Transmission Date: 20171127
  Serious: Yes (Other)
  Sender: FDA-Public Use
  Company Number: US-TORRENT-00003261

PATIENT
  Age: 39 Year
  Sex: Female

DRUGS (5)
  1. ZOLPIDEM TARTRATE. [Suspect]
     Active Substance: ZOLPIDEM TARTRATE
  2. ALPRAZOLAM. [Suspect]
     Active Substance: ALPRAZOLAM
  3. VENLAFAXINE HYDROCHLORIDE. [Interacting]
     Active Substance: VENLAFAXINE HYDROCHLORIDE
  4. SERTRALINE HCL [Interacting]
     Active Substance: SERTRALINE HYDROCHLORIDE
  5. ALCOHOL. [Suspect]
     Active Substance: ALCOHOL

REACTIONS (13)
  - Aggression [Unknown]
  - Toxicity to various agents [Unknown]
  - Suicidal ideation [Unknown]
  - Withdrawal syndrome [Unknown]
  - Feeling abnormal [Unknown]
  - Agitation [Unknown]
  - Restlessness [Unknown]
  - Homicidal ideation [Unknown]
  - Drug interaction [Unknown]
  - Sleep disorder [Unknown]
  - Mental impairment [Unknown]
  - Overdose [Unknown]
  - Emotional poverty [Unknown]
